FAERS Safety Report 5209934-1 (Version None)
Quarter: 2006Q4

REPORT INFORMATION
  Report Type: 
  Country: None (occurrence: None)
  Receive Date: 20061128
  Receipt Date: 20060427
  Transmission Date: 20070319
  Serious: Yes (Other)
  Sender: FDA-Public Use
  Company Number: 2006058162

PATIENT
  Age: 82 Year
  Sex: Female

DRUGS (4)
  1. TIKOSYN [Suspect]
     Indication: ILL-DEFINED DISORDER
     Dosage: 240 MCG (120 MCG, BID)
     Dates: start: 20060201
  2. COZAAR [Concomitant]
  3. TEMAZEPAM [Concomitant]
  4. AMIODARONE HCL [Concomitant]

REACTIONS (1)
  - PNEUMONIA [None]
